FAERS Safety Report 13638628 (Version 1)
Quarter: 2017Q2

REPORT INFORMATION
  Report Type: Report from Study
  Country: FR (occurrence: FR)
  Receive Date: 20170609
  Receipt Date: 20170609
  Transmission Date: 20170830
  Serious: Yes (Other)
  Sender: FDA-Public Use
  Company Number: FR-MYLANLABS-2017M1034510

PATIENT

DRUGS (3)
  1. BUSULFAN. [Suspect]
     Active Substance: BUSULFAN
     Indication: NEUROBLASTOMA
     Route: 065
  2. MELPHALAN. [Suspect]
     Active Substance: MELPHALAN
     Indication: NEUROBLASTOMA
     Dosage: 140 MG/M2, A SINGLE DOSE AFTER A A 24-H INTERVAL
     Route: 065
  3. THIOTEPA. [Concomitant]
     Active Substance: THIOTEPA
     Indication: NEUROBLASTOMA
     Dosage: 300 MG/M2, ON 3 CONSECUTIVE DAYS IN A 2-H INFUSION UP TO A TOTAL DOSE OF 900 MG/M2
     Route: 050

REACTIONS (4)
  - Neutropenia [Unknown]
  - Dizziness [Unknown]
  - Thrombocytopenia [Unknown]
  - Facial paralysis [Recovered/Resolved]
